FAERS Safety Report 7758216-2 (Version None)
Quarter: 2011Q3

REPORT INFORMATION
  Report Type: 
  Country: None (occurrence: None)
  Receive Date: 20110919
  Receipt Date: 20110912
  Transmission Date: 20111222
  Serious: Yes (Other)
  Sender: FDA-Public Use
  Company Number: US-AMGEN-USASP2011046688

PATIENT
  Age: 46 Year
  Sex: Female

DRUGS (3)
  1. HUMIRA [Concomitant]
     Dosage: UNK
     Dates: start: 20110831
  2. ENBREL [Suspect]
     Indication: RHEUMATOID ARTHRITIS
     Dosage: 50 MG, QWK
     Dates: start: 20101221, end: 20110301
  3. TWO ORAL MEDICATIONS FOR ARTHRITIS [Suspect]

REACTIONS (5)
  - PAIN IN EXTREMITY [None]
  - SWELLING [None]
  - BEDRIDDEN [None]
  - LIVER FUNCTION TEST ABNORMAL [None]
  - MEMORY IMPAIRMENT [None]
